FAERS Safety Report 6501317-7 (Version None)
Quarter: 2009Q4

REPORT INFORMATION
  Report Type: 
  Country: None (occurrence: None)
  Receive Date: 20091216
  Receipt Date: 20091208
  Transmission Date: 20100525
  Serious: Yes (Hospitalization)
  Sender: FDA-Public Use
  Company Number: DE-ELI_LILLY_AND_COMPANY-DE200912002048

PATIENT
  Sex: Female
  Weight: 64 kg

DRUGS (5)
  1. SOMATROPIN [Suspect]
     Indication: NON-SECRETORY ADENOMA OF PITUITARY
     Dosage: 0.3 MG, DAILY (1/D)
     Dates: start: 20001206
  2. LEVOTHYROXINE SODIUM [Concomitant]
     Indication: HYPOPITUITARISM
     Dosage: 100 MG, UNK
     Dates: start: 19940401
  3. HYDROCORTISONE [Concomitant]
     Indication: HYPOPITUITARISM
     Dosage: 15 MG, UNK
     Dates: start: 19940401
  4. MINIRIN [Concomitant]
     Indication: DIABETES INSIPIDUS
     Dosage: 0.1 MG, UNK
     Dates: start: 19940401
  5. TESTOSTERONE [Concomitant]
     Indication: HYPOPITUITARISM
     Dosage: 25 MG, UNK

REACTIONS (1)
  - UTERINE LEIOMYOMA [None]
